FAERS Safety Report 7205806-1 (Version None)
Quarter: 2010Q4

REPORT INFORMATION
  Report Type: 
  Country: None (occurrence: None)
  Receive Date: 20101231
  Receipt Date: 20101222
  Transmission Date: 20110411
  Serious: Yes (Other)
  Sender: FDA-Public Use
  Company Number: CH-MERCK-1012USA03582

PATIENT
  Age: 84 Year
  Sex: Male
  Weight: 74 kg

DRUGS (13)
  1. COZAAR [Suspect]
     Indication: HYPERTENSION
     Route: 048
  2. AMLODIPINE [Suspect]
     Indication: HYPERTENSION
     Route: 048
  3. MYSOLINE [Suspect]
     Indication: EPILEPSY
     Route: 048
     Dates: end: 20101114
  4. ASPIRIN [Concomitant]
     Indication: CORONARY ARTERY DISEASE
     Route: 048
  5. ZYLORIC [Concomitant]
     Route: 048
     Dates: end: 20101111
  6. SINEMET [Concomitant]
     Indication: PARKINSON'S DISEASE
     Route: 048
  7. CIPRALEX [Concomitant]
     Route: 048
  8. MEMANTINE HCL [Concomitant]
     Route: 048
  9. SEROQUEL [Concomitant]
     Route: 048
  10. VITARUBIN [Concomitant]
     Route: 058
     Dates: start: 20101028, end: 20101104
  11. THIAMINE [Concomitant]
     Route: 048
     Dates: start: 20101029, end: 20101108
  12. CALCIMAGON [Concomitant]
     Route: 048
     Dates: start: 20101028
  13. DAFALGAN [Concomitant]
     Route: 048
     Dates: start: 20101101

REACTIONS (2)
  - DRUG INEFFECTIVE [None]
  - HYPERTENSION [None]
